FAERS Safety Report 8227974-5 (Version None)
Quarter: 2012Q1

REPORT INFORMATION
  Report Type: 
  Country: None (occurrence: None)
  Receive Date: 20120322
  Receipt Date: 20120316
  Transmission Date: 20120608
  Serious: Yes (Disabling, Other)
  Sender: FDA-Public Use
  Company Number: PHHY2012ZA022003

PATIENT
  Sex: Male
  Weight: 80 kg

DRUGS (3)
  1. LIPITOR [Concomitant]
     Dosage: 10 MG, UNK
  2. WARFARIN SODIUM [Concomitant]
  3. SOTALOL HCL [Suspect]
     Indication: ATRIAL FIBRILLATION
     Dosage: 80 MG, UNK
     Route: 048
     Dates: start: 20020101

REACTIONS (4)
  - ANAEMIA MACROCYTIC [None]
  - REFRACTORY CYTOPENIA WITH MULTILINEAGE DYSPLASIA AND RINGED SIDEROBLASTS [None]
  - MYELODYSPLASTIC SYNDROME [None]
  - BLAST CELL COUNT INCREASED [None]
